FAERS Safety Report 8831792 (Version 3)
Quarter: 2012Q4

REPORT INFORMATION
  Report Type: 
  Country: US (occurrence: US)
  Receive Date: 20121009
  Receipt Date: 20121126
  Transmission Date: 20130627
  Serious: Yes (Other)
  Sender: FDA-Public Use
  Company Number: PHEH2012US018258

PATIENT
  Age: 67 Year
  Sex: Female
  Weight: 82 kg

DRUGS (9)
  1. GILENYA [Suspect]
     Indication: MULTIPLE SCLEROSIS
     Dosage: 0.5 mg, QD
     Route: 048
     Dates: start: 20120220
  2. BENAZEPRIL [Concomitant]
     Dosage: 1 DF, QD
  3. HYDROCHLOROTHIAZIDE [Concomitant]
     Dosage: 1 DF, QD
  4. SPIRONOLACTONE [Concomitant]
     Dosage: 1 DF, daily
  5. FLUOXETINE [Concomitant]
     Indication: DEPRESSION
     Dosage: 2 DF (20 mg/5ml), daily
  6. HYDROCODONE W/ACETAMINOPHEN [Concomitant]
     Indication: BACK PAIN
     Dosage: 7.5-500 mg, 1 DF up to twice in a day as needed
  7. FLONASE [Concomitant]
     Dosage: 50 mcg/act liquid 2 sprays, QD
  8. OXYBUTYNIN [Concomitant]
     Dosage: 1 DF, PRN
  9. FEXOFENADINE HYDROCHLORIDE [Concomitant]
     Dosage: 1 DF, PRN

REACTIONS (6)
  - Muscular weakness [Not Recovered/Not Resolved]
  - Condition aggravated [Not Recovered/Not Resolved]
  - Dysphagia [Not Recovered/Not Resolved]
  - Dysgraphia [Not Recovered/Not Resolved]
  - Dyspepsia [Not Recovered/Not Resolved]
  - Lymphocyte count decreased [Unknown]
